FAERS Safety Report 6842357-8 (Version None)
Quarter: 2010Q3

REPORT INFORMATION
  Report Type: 
  Country: None (occurrence: None)
  Receive Date: 20100714
  Receipt Date: 20070725
  Transmission Date: 20110219
  Serious: No
  Sender: FDA-Public Use
  Company Number: US-PFIZER INC-2007063367

PATIENT
  Sex: Female
  Weight: 60.8 kg

DRUGS (3)
  1. CHANTIX [Suspect]
     Indication: SMOKING CESSATION THERAPY
     Dates: start: 20070721
  2. TRAMADOL HCL [Concomitant]
  3. NAPROXEN [Concomitant]

REACTIONS (7)
  - CRYING [None]
  - FEELING HOT [None]
  - FEELING JITTERY [None]
  - HEADACHE [None]
  - HYPERHIDROSIS [None]
  - MOOD SWINGS [None]
  - NERVOUSNESS [None]
